FAERS Safety Report 4721982-4 (Version None)
Quarter: 2005Q3

REPORT INFORMATION
  Report Type: 
  Country: None (occurrence: None)
  Receive Date: 20050722
  Receipt Date: 20050711
  Transmission Date: 20060218
  Serious: Yes (Other)
  Sender: FDA-Public Use
  Company Number: US-BRISTOL-MYERS SQUIBB COMPANY-13032172

PATIENT
  Age: 53 Year
  Sex: Male

DRUGS (3)
  1. ENTECAVIR [Suspect]
  2. LOTREL [Concomitant]
     Indication: HYPERTENSION
  3. TOPROL-XL [Concomitant]
     Indication: HYPERTENSION

REACTIONS (1)
  - ANGIONEUROTIC OEDEMA [None]
